FAERS Safety Report 4659391-9 (Version None)
Quarter: 2005Q2

REPORT INFORMATION
  Report Type: 
  Country: None (occurrence: None)
  Receive Date: 20050510
  Receipt Date: 20050421
  Transmission Date: 20051028
  Serious: Yes (Life-Threatening, Hospitalization)
  Sender: FDA-Public Use
  Company Number: 6013926

PATIENT
  Age: 65 Year
  Sex: Female

DRUGS (7)
  1. LEVOTHYROX 150 (TABLET) (LEVOTHYROXINE SODIUM) [Suspect]
     Dosage: 150 MCG (150 MCG, 1 IN 1 D)
     Route: 048
     Dates: end: 20040626
  2. SOPROL (10 MG, TABLET) (BISOPROLOL FUMARATE) [Suspect]
     Dosage: 10 MG (10 MG, 1 IN 1 D)
     Route: 048
     Dates: end: 20040626
  3. CORDARONE [Suspect]
     Dosage: 400 MG (200 MG, 2 IN 1 D)
     Route: 048
     Dates: end: 20040626
  4. PRAZOSIN HCL [Suspect]
     Dosage: 5 MG (5 MG, 1 IN  1 D)
     Route: 048
     Dates: end: 20040626
  5. INEXIUM (TABLET) (ESOMEPRAZOLE) [Suspect]
     Dosage: 80 MG (40 MG, 2 IN 1 D)
     Route: 048
     Dates: end: 20040626
  6. ATARAX [Suspect]
     Dosage: 25 MG (25 MG, 1 IN 1 D)
     Route: 048
     Dates: end: 20040626
  7. SODIUM CHLORIDE 0.9% [Suspect]
     Dates: end: 20040626

REACTIONS (4)
  - CARDIO-RESPIRATORY ARREST [None]
  - DIALYSIS [None]
  - HYPERKALAEMIA [None]
  - RENAL FAILURE ACUTE [None]
